FAERS Safety Report 23803772 (Version 1)
Quarter: 2024Q2

REPORT INFORMATION
  Report Type: Spontaneous
  Country: US (occurrence: US)
  Receive Date: 20240501
  Receipt Date: 20240501
  Transmission Date: 20240716
  Serious: No
  Sender: FDA-Public Use
  Company Number: US-TORRENT-00013516

PATIENT
  Sex: Female

DRUGS (1)
  1. DULOXETINE HYDROCHLORIDE [Suspect]
     Active Substance: DULOXETINE HYDROCHLORIDE
     Indication: Product used for unknown indication
     Dosage: 2 20MG CAPSULES
     Route: 065

REACTIONS (4)
  - Anxiety [Recovered/Resolved]
  - Agitation [Recovered/Resolved]
  - Nightmare [Recovered/Resolved]
  - Therapy change [Unknown]
